FAERS Safety Report 7265610-5 (Version None)
Quarter: 2011Q1

REPORT INFORMATION
  Report Type: 
  Country: None (occurrence: None)
  Receive Date: 20110131
  Receipt Date: 20110120
  Transmission Date: 20110831
  Serious: Yes (Other)
  Sender: FDA-Public Use
  Company Number: DE-BAYER-2011-006692

PATIENT
  Age: 46 Year
  Sex: Female
  Weight: 50 kg

DRUGS (1)
  1. MIRENA [Suspect]
     Indication: CONTRACEPTION
     Dosage: 20 ?G/D, CONT
     Route: 015
     Dates: start: 20100907, end: 20101027

REACTIONS (24)
  - LISTLESS [None]
  - LYMPHADENOPATHY [None]
  - NIGHT SWEATS [None]
  - HIRSUTISM [None]
  - PALPITATIONS [None]
  - WEIGHT BEARING DIFFICULTY [None]
  - BREAST ENGORGEMENT [None]
  - DYSGEUSIA [None]
  - ECZEMA [None]
  - ABDOMINAL PAIN UPPER [None]
  - ARTHRALGIA [None]
  - THROAT TIGHTNESS [None]
  - VAGINAL HAEMORRHAGE [None]
  - OVARIAN INFECTION [None]
  - ALOPECIA [None]
  - DEPRESSION [None]
  - NAUSEA [None]
  - ACNE [None]
  - LOSS OF LIBIDO [None]
  - CONNECTIVE TISSUE DISORDER [None]
  - SKIN ODOUR ABNORMAL [None]
  - GASTROINTESTINAL PAIN [None]
  - VISUAL IMPAIRMENT [None]
  - UTERINE INFECTION [None]
